FAERS Safety Report 11403936 (Version 1)
Quarter: 2015Q3

REPORT INFORMATION
  Report Type: Spontaneous
  Country: US (occurrence: None)
  Receive Date: 20150820
  Receipt Date: 20150820
  Transmission Date: 20151125
  Serious: No
  Sender: FDA-Public Use
  Company Number: None

PATIENT
  Age: 33 Year
  Sex: Female
  Weight: 58.97 kg

DRUGS (2)
  1. IVERMECTIN 6UG ROSIVER [Suspect]
     Active Substance: IVERMECTIN
     Indication: ROSACEA
     Dosage: PEA SIZED AMOUNT, APPLIED TO A SURFACE USUALLY THE SKIN
     Dates: start: 20150722, end: 20150724
  2. METROGEL [Concomitant]
     Active Substance: METRONIDAZOLE

REACTIONS (3)
  - Chemical injury [None]
  - Application site papules [None]
  - Erythema [None]

NARRATIVE: CASE EVENT DATE: 20150724
